FAERS Safety Report 13807616 (Version 5)
Quarter: 2017Q3

REPORT INFORMATION
  Report Type: Spontaneous
  Country: US (occurrence: US)
  Receive Date: 20170728
  Receipt Date: 20170906
  Transmission Date: 20171127
  Serious: Yes (Other)
  Sender: FDA-Public Use
  Company Number: US-TEVA-791694USA

PATIENT
  Sex: Female

DRUGS (8)
  1. METOPROLOL. [Concomitant]
     Active Substance: METOPROLOL
  2. SPIRONOLACTONE. [Concomitant]
     Active Substance: SPIRONOLACTONE
  3. XANAX [Concomitant]
     Active Substance: ALPRAZOLAM
  4. NEXIUM [Concomitant]
     Active Substance: ESOMEPRAZOLE MAGNESIUM
  5. PREDNISONE. [Suspect]
     Active Substance: PREDNISONE
     Dates: start: 2015
  6. TRIAMTERENE. [Concomitant]
     Active Substance: TRIAMTERENE
  7. NADOLOL. [Suspect]
     Active Substance: NADOLOL
     Indication: TACHYCARDIA
     Dosage: 80 MILLIGRAM DAILY;
     Dates: start: 2015, end: 201602
  8. BISOPROLOL [Concomitant]
     Active Substance: BISOPROLOL

REACTIONS (6)
  - Alopecia [Unknown]
  - Rash generalised [Unknown]
  - Multi-organ disorder [Not Recovered/Not Resolved]
  - Product quality issue [Unknown]
  - Skin lesion [Unknown]
  - Renal impairment [Unknown]

NARRATIVE: CASE EVENT DATE: 2015
